FAERS Safety Report 5510004-3 (Version None)
Quarter: 2007Q4

REPORT INFORMATION
  Report Type: 
  Country: None (occurrence: None)
  Receive Date: 20071106
  Receipt Date: 20071022
  Transmission Date: 20080405
  Serious: Yes (Other)
  Sender: FDA-Public Use
  Company Number: S07-GER-05779-01

PATIENT
  Sex: Male

DRUGS (4)
  1. ESCITALOPRAM [Suspect]
     Dates: start: 20070401, end: 20070704
  2. ESCITALOPRAM [Suspect]
     Dosage: 5 MG QD PO
     Route: 048
     Dates: start: 20070911, end: 20070914
  3. ESCITALOPRAM [Suspect]
     Dosage: 10 MG QD PO
     Route: 048
     Dates: start: 20070915
  4. IODINE [Concomitant]

REACTIONS (7)
  - AGITATION [None]
  - ANXIETY [None]
  - BASAL CELL CARCINOMA [None]
  - HYPERHIDROSIS [None]
  - PRURITUS [None]
  - PSORIASIS [None]
  - VISION BLURRED [None]
